FAERS Safety Report 7256424-0 (Version None)
Quarter: 2011Q1

REPORT INFORMATION
  Report Type: 
  Country: None (occurrence: None)
  Receive Date: 20110129
  Receipt Date: 20100630
  Transmission Date: 20110831
  Serious: No
  Sender: FDA-Public Use
  Company Number: US-ABBOTT-10P-163-0654703-00

PATIENT
  Age: 34 Year
  Sex: Female

DRUGS (4)
  1. TREXIMET [Concomitant]
     Indication: MIGRAINE
  2. TOPAMAX [Concomitant]
     Indication: MIGRAINE PROPHYLAXIS
  3. XANAX [Concomitant]
     Indication: ANXIETY
  4. HUMIRA [Suspect]
     Indication: PSORIASIS
     Dates: start: 20100608

REACTIONS (4)
  - INJECTION SITE REACTION [None]
  - INJECTION SITE ERYTHEMA [None]
  - INJECTION SITE EXFOLIATION [None]
  - INJECTION SITE SWELLING [None]
